FAERS Safety Report 5889161-5 (Version None)
Quarter: 2008Q3

REPORT INFORMATION
  Report Type: 
  Country: None (occurrence: None)
  Receive Date: 20080919
  Receipt Date: 20080912
  Transmission Date: 20090109
  Serious: Yes (Death, Other)
  Sender: FDA-Public Use
  Company Number: GB-BAYER-200812445BNE

PATIENT
  Age: 7 Year
  Sex: Male

DRUGS (3)
  1. KOGENATE [Suspect]
     Indication: DRUG USE FOR UNKNOWN INDICATION
  2. FEIBA [Suspect]
     Indication: DRUG USE FOR UNKNOWN INDICATION
     Dates: start: 20080101
  3. FANDHI [Suspect]
     Indication: DRUG USE FOR UNKNOWN INDICATION
     Dates: start: 20080101

REACTIONS (2)
  - DEATH [None]
  - FACTOR VIII INHIBITION [None]
